FAERS Safety Report 4752988-7 (Version None)
Quarter: 2005Q3

REPORT INFORMATION
  Report Type: 
  Country: None (occurrence: None)
  Receive Date: 20050825
  Receipt Date: 20050808
  Transmission Date: 20060218
  Serious: Yes (Hospitalization, Other)
  Sender: FDA-Public Use
  Company Number: 2005-01690

PATIENT
  Age: 76 Year
  Sex: Female
  Weight: 56.7 kg

DRUGS (11)
  1. VELCADE [Suspect]
     Indication: MULTIPLE MYELOMA
     Dosage: SEE IMAGE
     Route: 042
     Dates: start: 20031020
  2. VELCADE [Suspect]
     Indication: MULTIPLE MYELOMA
     Dosage: SEE IMAGE
     Route: 042
     Dates: start: 20050526
  3. LOPRESSOR [Concomitant]
  4. ACIPHEX [Concomitant]
  5. ALEVE [Concomitant]
  6. MULTIVITAMINS (ERGOCALCIFEROL, PANTHENOL, NOCOTINAMIDE,  RIBOFLAVIN, T [Concomitant]
  7. ZOMETA [Concomitant]
  8. ARANESP [Concomitant]
  9. HYDROCHLOROTHIAZIDE [Concomitant]
  10. NITROGLYCERIN [Concomitant]
  11. KLOR-CON [Concomitant]

REACTIONS (8)
  - ANGINA PECTORIS [None]
  - ANGINA UNSTABLE [None]
  - ANTI-PLATELET ANTIBODY POSITIVE [None]
  - BONE PAIN [None]
  - CHEST PAIN [None]
  - DECREASED APPETITE [None]
  - THROMBOCYTOPENIA [None]
  - WEIGHT DECREASED [None]
